FAERS Safety Report 7179793-9 (Version None)
Quarter: 2010Q4

REPORT INFORMATION
  Report Type: 
  Country: None (occurrence: None)
  Receive Date: 20101221
  Receipt Date: 20101210
  Transmission Date: 20110411
  Serious: Yes (Hospitalization)
  Sender: FDA-Public Use
  Company Number: DK-JNJFOC-20101204807

PATIENT
  Sex: Female

DRUGS (9)
  1. REMICADE [Suspect]
     Indication: PSORIASIS
     Route: 042
  2. ORABET (METFORMIN) [Concomitant]
     Route: 048
  3. NOVOMIX 30 [Concomitant]
     Dosage: PENFILL
     Route: 058
  4. LANTUS [Concomitant]
     Route: 058
  5. DAIVOBET [Concomitant]
     Route: 061
  6. IBUPROFEN [Concomitant]
     Route: 065
  7. PANTOLOC [Concomitant]
     Route: 042
  8. CO-APROVEL [Concomitant]
     Route: 048
  9. SIMVASTATIN [Concomitant]
     Route: 065

REACTIONS (5)
  - COUGH [None]
  - CYSTITIS [None]
  - FATIGUE [None]
  - MALAISE [None]
  - NAUSEA [None]
